FAERS Safety Report 6961119-4 (Version None)
Quarter: 2010Q3

REPORT INFORMATION
  Report Type: 
  Country: None (occurrence: None)
  Receive Date: 20100901
  Receipt Date: 20100823
  Transmission Date: 20110219
  Serious: Yes (Death)
  Sender: FDA-Public Use
  Company Number: IT-GENENTECH-305855

PATIENT

DRUGS (1)
  1. RITUXIMAB [Suspect]
     Indication: DIFFUSE LARGE B-CELL LYMPHOMA
     Dosage: UNK
     Route: 065

REACTIONS (3)
  - DEATH [None]
  - DIFFUSE LARGE B-CELL LYMPHOMA [None]
  - NEUTROPENIA [None]
